FAERS Safety Report 5764741-6 (Version None)
Quarter: 2008Q2

REPORT INFORMATION
  Report Type: 
  Country: None (occurrence: None)
  Receive Date: 20080611
  Receipt Date: 20080530
  Transmission Date: 20081010
  Serious: Yes (Hospitalization, Other)
  Sender: FDA-Public Use
  Company Number: JP-MERCK-0804USA02775

PATIENT
  Age: 73 Year
  Sex: Female

DRUGS (10)
  1. FOSAMAX [Suspect]
     Indication: OSTEOPOROSIS
     Route: 048
     Dates: start: 20061204, end: 20080414
  2. FOSAMAX [Suspect]
     Route: 048
     Dates: start: 20061127, end: 20061203
  3. CALFINA [Concomitant]
     Indication: VITAMIN D
     Route: 048
     Dates: start: 20061127
  4. RIMATIL [Concomitant]
     Indication: MUSCULOSKELETAL PAIN
     Route: 048
     Dates: start: 20061127
  5. MEFENAMIC ACID [Concomitant]
     Indication: PAIN
     Route: 048
     Dates: start: 20061127
  6. LIMAPROST ALFADEX [Concomitant]
     Route: 048
     Dates: start: 20061111
  7. [THERAPY UNSPECIFIED] [Concomitant]
     Indication: HYPERLIPIDAEMIA
     Route: 048
     Dates: start: 20061127
  8. ZEPOLAS [Concomitant]
     Indication: PAIN
     Route: 061
     Dates: start: 20061127
  9. CYANOCOBALAMIN [Concomitant]
     Indication: VITAMIN B12
     Route: 048
     Dates: start: 20061127
  10. NERIPROCT [Concomitant]
     Indication: HAEMORRHOIDS
     Route: 061
     Dates: start: 20061127

REACTIONS (2)
  - INTERVERTEBRAL DISC PROTRUSION [None]
  - OSTEONECROSIS [None]
